FAERS Safety Report 8620318-6 (Version None)
Quarter: 2012Q3

REPORT INFORMATION
  Report Type: 
  Country: None (occurrence: None)
  Receive Date: 20120817
  Receipt Date: 20120817
  Transmission Date: 20120928
  Serious: Yes (Other)
  Sender: FDA-Public Use
  Company Number: None

PATIENT
  Sex: Male
  Weight: 83.9154 kg

DRUGS (1)
  1. LEXISCAN [Suspect]
     Indication: CARDIAC STRESS TEST
     Dosage: ONE TIME INJECTION
     Dates: start: 20120803, end: 20120803

REACTIONS (1)
  - ARTHRALGIA [None]
